FAERS Safety Report 13775163 (Version 2)
Quarter: 2018Q2

REPORT INFORMATION
  Report Type: Spontaneous
  Country: US (occurrence: US)
  Receive Date: 20170720
  Receipt Date: 20180427
  Transmission Date: 20180711
  Serious: No
  Sender: FDA-Public Use
  Company Number: US-ASTRAZENECA-2017SE73984

PATIENT
  Age: 598 Month
  Sex: Male
  Weight: 74.8 kg

DRUGS (2)
  1. TUDORZA PRESSAIR [Suspect]
     Active Substance: ACLIDINIUM BROMIDE
     Indication: CHRONIC OBSTRUCTIVE PULMONARY DISEASE
     Route: 055
     Dates: start: 20170630
  2. TUDORZA PRESSAIR [Suspect]
     Active Substance: ACLIDINIUM BROMIDE
     Indication: EMPHYSEMA
     Route: 055
     Dates: start: 20170630

REACTIONS (4)
  - Drug dose omission [Unknown]
  - Device malfunction [Unknown]
  - Dyspnoea [Not Recovered/Not Resolved]
  - Product taste abnormal [Unknown]

NARRATIVE: CASE EVENT DATE: 201707
